FAERS Safety Report 7425663-8 (Version None)
Quarter: 2011Q2

REPORT INFORMATION
  Report Type: 
  Country: None (occurrence: None)
  Receive Date: 20110420
  Receipt Date: 20110411
  Transmission Date: 20111010
  Serious: Yes (Other)
  Sender: FDA-Public Use
  Company Number: GR-AMGEN-GRCSP2011016546

PATIENT
  Age: 67 Year
  Sex: Female

DRUGS (3)
  1. PROLIA [Suspect]
     Indication: OSTEOPOROSIS
     Dosage: UNK
     Dates: start: 20110101
  2. VITAMIN A [Concomitant]
  3. CALCIUM [Concomitant]

REACTIONS (3)
  - ACNE [None]
  - RASH ERYTHEMATOUS [None]
  - HYPERSENSITIVITY [None]
